FAERS Safety Report 13353729 (Version 1)
Quarter: 2017Q1

REPORT INFORMATION
  Report Type: Spontaneous
  Country: GB (occurrence: GB)
  Receive Date: 20170321
  Receipt Date: 20170321
  Transmission Date: 20170429
  Serious: Yes (Other)
  Sender: FDA-Public Use
  Company Number: GB-ACCORD-049152

PATIENT
  Age: 22 Year
  Sex: Female
  Weight: 71.66 kg

DRUGS (6)
  1. FOLIC ACID. [Suspect]
     Active Substance: FOLIC ACID
     Indication: RHEUMATOID ARTHRITIS
     Route: 048
     Dates: start: 20170217
  2. HUMIRA [Suspect]
     Active Substance: ADALIMUMAB
     Indication: RHEUMATOID ARTHRITIS
     Route: 051
     Dates: start: 20170123
  3. CETIRIZINE/CETIRIZINE HYDROCHLORIDE [Concomitant]
  4. PREDNISOLONE. [Concomitant]
     Active Substance: PREDNISOLONE
  5. CERAZETTE [Concomitant]
     Active Substance: DESOGESTREL
  6. METHOTREXATE. [Suspect]
     Active Substance: METHOTREXATE
     Indication: RHEUMATOID ARTHRITIS
     Route: 048
     Dates: start: 20170216

REACTIONS (1)
  - Migraine [Recovered/Resolved]

NARRATIVE: CASE EVENT DATE: 20170221
